FAERS Safety Report 19415700 (Version 1)
Quarter: 2021Q2

REPORT INFORMATION
  Report Type: Spontaneous
  Country: US (occurrence: US)
  Receive Date: 20210614
  Receipt Date: 20210614
  Transmission Date: 20210717
  Serious: Yes (Hospitalization)
  Sender: FDA-Public Use
  Company Number: None

PATIENT
  Sex: Female

DRUGS (3)
  1. LASIX, ONDANSETRON, PANTOPRAZOLE, ZOLPIDEM, PROMETHEGAN, IBUPROFEN [Concomitant]
  2. SILDENAFIL, LISINOPRIL, ATORVASTATIN, FUROSEMIDE, NICOTINE TD [Concomitant]
  3. AMBRISENTAN [Suspect]
     Active Substance: AMBRISENTAN
     Indication: PULMONARY ARTERIAL HYPERTENSION
     Route: 048
     Dates: start: 20210126

REACTIONS (2)
  - Oxygen saturation decreased [None]
  - Peripheral swelling [None]
